FAERS Safety Report 7215586-1 (Version None)
Quarter: 2011Q1

REPORT INFORMATION
  Report Type: 
  Country: None (occurrence: None)
  Receive Date: 20110107
  Receipt Date: 20101228
  Transmission Date: 20110831
  Serious: Yes (Hospitalization)
  Sender: FDA-Public Use
  Company Number: US-JNJCH-2010023767

PATIENT
  Age: 33 Year
  Sex: Female
  Weight: 47 kg

DRUGS (2)
  1. LEVOTHYROXINE [Concomitant]
     Indication: HYPOTHYROIDISM
     Dosage: TEXT:UNKNOWN
     Route: 065
  2. DIPHENHYDRAMINE [Suspect]
     Indication: INTENTIONAL OVERDOSE
     Dosage: TEXT:UNKNOWN
     Route: 065

REACTIONS (3)
  - TACHYCARDIA [None]
  - INTENTIONAL OVERDOSE [None]
  - STATUS EPILEPTICUS [None]
